FAERS Safety Report 9425080 (Version 2)
Quarter: 2013Q3

REPORT INFORMATION
  Report Type: Report from Study
  Country: CA (occurrence: CA)
  Receive Date: 20130729
  Receipt Date: 20130926
  Transmission Date: 20140515
  Serious: Yes (Other)
  Sender: FDA-Public Use
  Company Number: CA-JNJFOC-20130715052

PATIENT
  Age: 67 Year
  Sex: Male
  Weight: 99.5 kg

DRUGS (1)
  1. REMICADE [Suspect]
     Indication: RHEUMATOID ARTHRITIS
     Route: 042
     Dates: start: 20130221, end: 20130731

REACTIONS (2)
  - Polyp [Unknown]
  - Bladder neoplasm [Unknown]
